FAERS Safety Report 9105995 (Version 2)
Quarter: 2013Q1

REPORT INFORMATION
  Report Type: Spontaneous
  Country: US (occurrence: US)
  Receive Date: 20130221
  Receipt Date: 20130301
  Transmission Date: 20140127
  Serious: Yes (Other)
  Sender: FDA-Public Use
  Company Number: US-ASTELLAS-2013US001841

PATIENT
  Age: 62 Year
  Sex: Female

DRUGS (1)
  1. LEXISCAN [Suspect]
     Indication: SCAN MYOCARDIAL PERFUSION
     Dosage: 400 UG, TOTAL DOSE
     Route: 042

REACTIONS (7)
  - Cerebrovascular accident [Unknown]
  - Hemiplegia [Recovering/Resolving]
  - Mental status changes [Unknown]
  - Muscular weakness [Unknown]
  - Headache [Unknown]
  - Nausea [Unknown]
  - Abdominal pain upper [Recovering/Resolving]
